FAERS Safety Report 16482852 (Version 1)
Quarter: 2019Q2

REPORT INFORMATION
  Report Type: Spontaneous
  Country: DE (occurrence: DE)
  Receive Date: 20190627
  Receipt Date: 20190627
  Transmission Date: 20190711
  Serious: Yes (Life-Threatening)
  Sender: FDA-Public Use
  Company Number: DE-AUROBINDO-AUR-APL-2019-017508

PATIENT

DRUGS (3)
  1. VALSARTAN HEXAL [Suspect]
     Active Substance: VALSARTAN
     Indication: HYPERTENSION
     Dosage: 160 MILLIGRAM, UNK
     Route: 065
  2. VALSARTAN. [Suspect]
     Active Substance: VALSARTAN
     Indication: HYPERTENSION
     Dosage: UNK
     Route: 065
  3. VALSARTAN 1A PHARMA [Suspect]
     Active Substance: VALSARTAN
     Indication: HYPERTENSION
     Dosage: 160 MILLIGRAM, UNK
     Route: 065

REACTIONS (13)
  - General physical health deterioration [Unknown]
  - Restlessness [Unknown]
  - Sleep disorder [Unknown]
  - Condition aggravated [Unknown]
  - Product substitution issue [Unknown]
  - Diarrhoea [Unknown]
  - Shock [Unknown]
  - Post-traumatic stress disorder [Unknown]
  - Erythema [Unknown]
  - Mental impairment [Unknown]
  - Emotional distress [Unknown]
  - Fear [Unknown]
  - Skin reaction [Unknown]
